FAERS Safety Report 15677401 (Version 2)
Quarter: 2018Q4

REPORT INFORMATION
  Report Type: Spontaneous
  Country: MX (occurrence: MX)
  Receive Date: 20181130
  Receipt Date: 20181206
  Transmission Date: 20190205
  Serious: Yes (Life-Threatening, Hospitalization, Other)
  Sender: FDA-Public Use
  Company Number: MX-B.I. PHARMACEUTICALS,INC./RIDGEFIELD-2018-BI-058025

PATIENT
  Age: 52 Year
  Sex: Male
  Weight: 80 kg

DRUGS (5)
  1. PRADAXAR [Suspect]
     Active Substance: DABIGATRAN ETEXILATE MESYLATE
     Indication: HYPERCOAGULATION
  2. MONOCLONAL ANTIBODIES [Concomitant]
     Active Substance: UNSPECIFIED INGREDIENT
     Indication: LUNG ADENOCARCINOMA
     Route: 065
  3. ETOPOSIDO [Concomitant]
     Active Substance: ETOPOSIDE
     Indication: LUNG ADENOCARCINOMA
     Route: 065
  4. PRADAXAR [Suspect]
     Active Substance: DABIGATRAN ETEXILATE MESYLATE
     Indication: PULMONARY EMBOLISM
     Route: 048
     Dates: end: 20181128
  5. PACLITAXEL. [Concomitant]
     Active Substance: PACLITAXEL
     Indication: LUNG ADENOCARCINOMA
     Route: 065

REACTIONS (1)
  - Drug ineffective [Recovering/Resolving]

NARRATIVE: CASE EVENT DATE: 20181128
